FAERS Safety Report 23836614 (Version 2)
Quarter: 2024Q2

REPORT INFORMATION
  Report Type: Report from Study
  Country: IT (occurrence: IT)
  Receive Date: 20240509
  Receipt Date: 20240628
  Transmission Date: 20240716
  Serious: Yes (Hospitalization, Other)
  Sender: FDA-Public Use
  Company Number: None

PATIENT

DRUGS (6)
  1. PEGASPARGASE [Suspect]
     Active Substance: PEGASPARGASE
     Indication: Acute lymphocytic leukaemia recurrent
     Dosage: 1539.00 IU INFUSION IN 100 ML NACL 0.9% IN 120 MIN. ON 26/03 AND 09/04/2024
     Route: 042
     Dates: start: 20240326, end: 20240409
  2. METHOTREXATE (METHOTREXATE SODIUM) [Suspect]
     Active Substance: METHOTREXATE SODIUM
     Indication: Acute lymphocytic leukaemia recurrent
     Dosage: 153.90 MG INFUSION IN 50 ML NACL 0.9% IN 30 MIN. + 1385.00 MG INFUSION IN 750 ML NACL 0.9% IN 2130 M
     Route: 042
     Dates: start: 20240323, end: 20240324
  3. VINCRISTINE [Suspect]
     Active Substance: VINCRISTINE
     Indication: Acute lymphocytic leukaemia recurrent
     Dosage: 2 MG/DAY IV BOLUS IN 20 ML NACL 0.9% INFUSION OVER 3 MIN. ON 28/03, 06/04/2024
     Route: 042
     Dates: start: 20240328, end: 20240406
  4. CYTARABINE [Suspect]
     Active Substance: CYTARABINE
     Indication: Acute lymphocytic leukaemia recurrent
     Dosage: 4515,00 MG X BID INFUSION IN 500 ML NACL 0.9% IN 180 MIN.
     Route: 042
     Dates: start: 20240407, end: 20240407
  5. DECADRON [Concomitant]
     Active Substance: DEXAMETHASONE
     Indication: Acute lymphocytic leukaemia recurrent
     Dosage: 30 MG/DAY FROM 03/22 TO 03/27/2024, 30 MG/DAY FROM 04/05 TO 04/10/2024
     Route: 042
     Dates: start: 20240327, end: 20240410
  6. PANTOPRAZOLE [Concomitant]
     Active Substance: PANTOPRAZOLE
     Indication: Prophylaxis against gastrointestinal ulcer
     Dosage: 40 MG/DAY FROM 20/03 TO 27/03/2024, 40 MG/DAY FROM 05/04 TO 10/04/2024
     Route: 042
     Dates: start: 20240327, end: 20240410

REACTIONS (5)
  - Febrile neutropenia [Recovering/Resolving]
  - Febrile neutropenia [Recovered/Resolved]
  - Pancytopenia [Recovering/Resolving]
  - Anaemia [Recovering/Resolving]
  - Abdominal pain [Recovered/Resolved]

NARRATIVE: CASE EVENT DATE: 20240403
